FAERS Safety Report 6685222-1 (Version None)
Quarter: 2010Q2

REPORT INFORMATION
  Report Type: 
  Country: None (occurrence: None)
  Receive Date: 20100416
  Receipt Date: 20100405
  Transmission Date: 20101027
  Serious: Yes (Hospitalization, Other)
  Sender: FDA-Public Use
  Company Number: JP-ELI_LILLY_AND_COMPANY-JP201003005837

PATIENT
  Sex: Female
  Weight: 44 kg

DRUGS (3)
  1. ZYPREXA [Suspect]
     Indication: SCHIZOPHRENIA
     Dosage: 5 MG IN THE MORNING, 10 MG IN THE EVENING
     Route: 048
     Dates: start: 20091101, end: 20100303
  2. ZYPREXA [Suspect]
     Dosage: 150 MG, UNK
     Route: 048
     Dates: start: 20100304, end: 20100304
  3. PURSENNID [Concomitant]
     Indication: CONSTIPATION
     Dosage: 24 MG, DAILY (1/D)
     Route: 048
     Dates: start: 20091225, end: 20100304

REACTIONS (5)
  - ALTERED STATE OF CONSCIOUSNESS [None]
  - BLOOD ALKALINE PHOSPHATASE DECREASED [None]
  - CONVULSION [None]
  - INTENTIONAL OVERDOSE [None]
  - SUICIDE ATTEMPT [None]
